FAERS Safety Report 4940191-7 (Version None)
Quarter: 2006Q1

REPORT INFORMATION
  Report Type: 
  Country: None (occurrence: None)
  Receive Date: 20060310
  Receipt Date: 20051205
  Transmission Date: 20060701
  Serious: Yes (Death, Hospitalization)
  Sender: FDA-Public Use
  Company Number: FR-ABBOTT-05P-056-0318642-01

PATIENT
  Sex: Female

DRUGS (5)
  1. RITONAVIR SOFT GELATIN CAPSULES [Suspect]
     Indication: HIV INFECTION
     Route: 048
     Dates: start: 20051011, end: 20051115
  2. TIPRANAVIR [Concomitant]
     Indication: HIV INFECTION
     Route: 048
     Dates: start: 20051011, end: 20051115
  3. TRIZIVIR [Concomitant]
     Indication: HIV INFECTION
     Route: 048
     Dates: start: 20050501, end: 20051115
  4. INDINIVIR SULFATE [Concomitant]
     Indication: HIV INFECTION
     Dates: start: 20050501, end: 20051115
  5. FUZEON [Concomitant]
     Indication: HIV INFECTION
     Route: 058
     Dates: start: 20050501, end: 20051115

REACTIONS (3)
  - BRAIN HERNIATION [None]
  - INTRACRANIAL PRESSURE INCREASED [None]
  - LEUKOENCEPHALOPATHY [None]
